FAERS Safety Report 16607177 (Version 1)
Quarter: 2019Q3

REPORT INFORMATION
  Report Type: Spontaneous
  Country: US (occurrence: US)
  Receive Date: 20190722
  Receipt Date: 20190722
  Transmission Date: 20191004
  Serious: Yes (Hospitalization, Other)
  Sender: FDA-Public Use
  Company Number: US-AUROBINDO-AUR-APL-2019-040866

PATIENT

DRUGS (5)
  1. DINITROPHENOL [Suspect]
     Active Substance: 2,4-DINITROPHENOL
     Indication: PRODUCT USED FOR UNKNOWN INDICATION
     Dosage: UNK
     Route: 065
  2. TAURINE [Suspect]
     Active Substance: TAURINE
     Indication: PRODUCT USED FOR UNKNOWN INDICATION
     Dosage: UNK
     Route: 065
  3. LEVOTHYROXINE SODIUM. [Suspect]
     Active Substance: LEVOTHYROXINE SODIUM
     Indication: PRODUCT USED FOR UNKNOWN INDICATION
     Dosage: UNK
     Route: 065
  4. HYDROXYZINE [Suspect]
     Active Substance: HYDROXYZINE HYDROCHLORIDE
     Indication: PRODUCT USED FOR UNKNOWN INDICATION
     Dosage: UNK
     Route: 065
  5. CREATINE MONOHYDRATE [Suspect]
     Active Substance: CREATINE MONOHYDRATE
     Indication: PRODUCT USED FOR UNKNOWN INDICATION
     Dosage: UNK
     Route: 065

REACTIONS (9)
  - Blood glucose increased [Unknown]
  - Confusional state [Unknown]
  - Blood creatine phosphokinase increased [Unknown]
  - Tremor [Unknown]
  - Hyperthermia [Recovered/Resolved]
  - Hyperhidrosis [Unknown]
  - Drug abuse [Unknown]
  - Overdose [Unknown]
  - Blood creatinine decreased [Unknown]
